FAERS Safety Report 15229071 (Version 2)
Quarter: 2018Q3

REPORT INFORMATION
  Report Type: Spontaneous
  Country: US (occurrence: US)
  Receive Date: 20180801
  Receipt Date: 20180806
  Transmission Date: 20181010
  Serious: No
  Sender: FDA-Public Use
  Company Number: US-009507513-1807USA001229

PATIENT

DRUGS (2)
  1. PUREGON PEN [Suspect]
     Active Substance: FOLLITROPIN
     Indication: PRODUCT USED FOR UNKNOWN INDICATION
  2. FOLLISTIM [Suspect]
     Active Substance: FOLLITROPIN
     Dosage: 300 IU, PER DAY FOR 15 DAYS
     Route: 058
     Dates: start: 20180629

REACTIONS (3)
  - No adverse event [Unknown]
  - Device issue [Unknown]
  - Circumstance or information capable of leading to medication error [Unknown]

NARRATIVE: CASE EVENT DATE: 2018
